FAERS Safety Report 6235875-7 (Version None)
Quarter: 2009Q2

REPORT INFORMATION
  Report Type: 
  Country: None (occurrence: None)
  Receive Date: 20090617
  Receipt Date: 20090617
  Transmission Date: 20091009
  Serious: Yes (Hospitalization)
  Sender: FDA-Public Use
  Company Number: None

PATIENT
  Age: 63 Year
  Sex: Male
  Weight: 117 kg

DRUGS (2)
  1. ENOXAPARIN SODIUM [Suspect]
     Indication: THROMBOSIS PROPHYLAXIS
     Dosage: 120 MG BID SQ
     Route: 058
     Dates: start: 20090611, end: 20090615
  2. WARFARIN SODIUM [Suspect]
     Indication: THROMBOSIS PROPHYLAXIS
     Dosage: 10 MG EVERY DAY PO
     Route: 048
     Dates: start: 20090612, end: 20090615

REACTIONS (5)
  - FLANK PAIN [None]
  - GROIN PAIN [None]
  - HAEMORRHAGE [None]
  - RETROPERITONEAL HAEMATOMA [None]
  - VOMITING [None]
